FAERS Safety Report 23346524 (Version 1)
Quarter: 2023Q4

REPORT INFORMATION
  Report Type: Spontaneous
  Country: FR (occurrence: FR)
  Receive Date: 20231228
  Receipt Date: 20231228
  Transmission Date: 20240109
  Serious: Yes (Hospitalization)
  Sender: FDA-Public Use
  Company Number: None

PATIENT
  Age: 21 Year
  Sex: Female
  Weight: 69 kg

DRUGS (1)
  1. LYRICA [Suspect]
     Active Substance: PREGABALIN
     Indication: Product used for unknown indication
     Dosage: 300 MILLIGRAM, QD
     Route: 048
     Dates: start: 2015

REACTIONS (2)
  - Drug use disorder [Recovering/Resolving]
  - Withdrawal syndrome [Recovering/Resolving]

NARRATIVE: CASE EVENT DATE: 20231101
